FAERS Safety Report 6770401-5 (Version None)
Quarter: 2010Q2

REPORT INFORMATION
  Report Type: 
  Country: None (occurrence: None)
  Receive Date: 20100615
  Receipt Date: 20100604
  Transmission Date: 20101027
  Serious: Yes (Other)
  Sender: FDA-Public Use
  Company Number: US-PFIZER INC-2010070443

PATIENT
  Sex: Female

DRUGS (2)
  1. NIFEDIPINE [Suspect]
     Dosage: UNK
  2. NAPROXEN [Suspect]

REACTIONS (6)
  - ANXIETY [None]
  - HOT FLUSH [None]
  - NERVOUSNESS [None]
  - PANIC REACTION [None]
  - PRURITUS [None]
  - TREMOR [None]
